FAERS Safety Report 5875439-8 (Version None)
Quarter: 2008Q3

REPORT INFORMATION
  Report Type: 
  Country: None (occurrence: None)
  Receive Date: 20080909
  Receipt Date: 20080821
  Transmission Date: 20090109
  Serious: No
  Sender: FDA-Public Use
  Company Number: US-BAYER-200832406NA

PATIENT
  Age: 32 Year
  Sex: Female

DRUGS (2)
  1. ULTRAVIST 300 [Suspect]
     Indication: COMPUTERISED TOMOGRAM ABDOMEN
     Route: 042
     Dates: start: 20080819, end: 20080819
  2. READI-CAT [Concomitant]
     Indication: COMPUTERISED TOMOGRAM ABDOMEN
     Route: 048
     Dates: start: 20080819, end: 20080819

REACTIONS (4)
  - ORAL PRURITUS [None]
  - PRURITUS [None]
  - SNEEZING [None]
  - URTICARIA [None]
